FAERS Safety Report 22630910 (Version 1)
Quarter: 2023Q2

REPORT INFORMATION
  Report Type: Spontaneous
  Country: CN (occurrence: CN)
  Receive Date: 20230622
  Receipt Date: 20230622
  Transmission Date: 20230721
  Serious: Yes (Other)
  Sender: FDA-Public Use
  Company Number: CN-BoehringerIngelheim-2023-BI-245421

PATIENT
  Age: 91 Year
  Sex: Male
  Weight: 49 kg

DRUGS (3)
  1. ALTEPLASE [Suspect]
     Active Substance: ALTEPLASE
     Indication: Thrombolysis
     Dosage: 0.9% SODIUM CHLORIDE INJECTION 50ML VIA INTRAVENOUS PUMP
     Route: 042
     Dates: start: 20230608, end: 20230608
  2. ALTEPLASE [Suspect]
     Active Substance: ALTEPLASE
     Dosage: FOR THE FIRST PUSH
     Route: 042
     Dates: start: 20230608, end: 20230608
  3. SODIUM CHLORIDE [Concomitant]
     Active Substance: SODIUM CHLORIDE
     Indication: Drug therapy
     Route: 058
     Dates: start: 20230608, end: 20230608

REACTIONS (2)
  - Upper gastrointestinal haemorrhage [Unknown]
  - Diarrhoea [Unknown]

NARRATIVE: CASE EVENT DATE: 20230608
